FAERS Safety Report 5708415-6 (Version None)
Quarter: 2008Q2

REPORT INFORMATION
  Report Type: 
  Country: None (occurrence: None)
  Receive Date: 20080417
  Receipt Date: 20080408
  Transmission Date: 20081010
  Serious: Yes (Hospitalization, Other)
  Sender: FDA-Public Use
  Company Number: JP-PFIZER INC-2008026959

PATIENT
  Age: 57 Year
  Sex: Female

DRUGS (2)
  1. DIFLUCAN [Suspect]
     Indication: FUNGAL INFECTION
     Route: 048
  2. DRUG, UNSPECIFIED [Concomitant]

REACTIONS (1)
  - DELIRIUM [None]
